FAERS Safety Report 6984372-X (Version None)
Quarter: 2010Q3

REPORT INFORMATION
  Report Type: 
  Country: None (occurrence: None)
  Receive Date: 20100915
  Receipt Date: 20100908
  Transmission Date: 20110219
  Serious: Yes (Other)
  Sender: FDA-Public Use
  Company Number: US-BAYER-201033341NA

PATIENT
  Sex: Female

DRUGS (1)
  1. YAZ [Suspect]
     Indication: PRODUCT USED FOR UNKNOWN INDICATION
     Route: 048
     Dates: start: 20080623, end: 20080829

REACTIONS (4)
  - DYSPNOEA [None]
  - HYPOAESTHESIA [None]
  - PLEURITIC PAIN [None]
  - PULMONARY EMBOLISM [None]
